FAERS Safety Report 7736132-X (Version None)
Quarter: 2011Q3

REPORT INFORMATION
  Report Type: 
  Country: None (occurrence: None)
  Receive Date: 20110908
  Receipt Date: 20110829
  Transmission Date: 20111222
  Serious: Yes (Hospitalization)
  Sender: FDA-Public Use
  Company Number: DE-JNJFOC-20110810137

PATIENT
  Sex: Male
  Weight: 75.8 kg

DRUGS (24)
  1. PALIPERIDONE [Suspect]
     Route: 030
     Dates: start: 20110726, end: 20110818
  2. VALPROATE SODIUM [Concomitant]
     Route: 048
     Dates: start: 20110713, end: 20110727
  3. VALPROATE SODIUM [Concomitant]
     Route: 048
     Dates: start: 20110712, end: 20110712
  4. VALPROATE SODIUM [Concomitant]
     Route: 048
     Dates: start: 20110617, end: 20110711
  5. VALPROATE SODIUM [Concomitant]
     Indication: RESTLESSNESS
     Route: 048
     Dates: start: 20110808
  6. VALPROATE SODIUM [Concomitant]
     Route: 048
     Dates: start: 20110728, end: 20110728
  7. VALPROATE SODIUM [Concomitant]
     Route: 048
     Dates: start: 20110713, end: 20110727
  8. VALPROATE SODIUM [Concomitant]
     Indication: THERAPEUTIC RESPONSE DECREASED
     Route: 048
     Dates: start: 20110808
  9. PALIPERIDONE [Suspect]
     Route: 030
     Dates: start: 20110621, end: 20110628
  10. VALPROATE SODIUM [Concomitant]
     Route: 048
     Dates: start: 20110728, end: 20110728
  11. VALPROATE SODIUM [Concomitant]
     Route: 048
     Dates: start: 20110617, end: 20110711
  12. RISPERDAL [Suspect]
     Indication: PRODUCT USED FOR UNKNOWN INDICATION
     Route: 048
     Dates: start: 20110708, end: 20110711
  13. VALPROATE SODIUM [Concomitant]
     Route: 048
     Dates: start: 20110808
  14. VALPROATE SODIUM [Concomitant]
     Route: 048
     Dates: start: 20110712, end: 20110712
  15. PALIPERIDONE [Suspect]
     Indication: SCHIZOPHRENIA, PARANOID TYPE
     Route: 030
     Dates: start: 20110621, end: 20110621
  16. VALPROATE SODIUM [Concomitant]
     Route: 048
     Dates: start: 20110728, end: 20110728
  17. RISPERDAL [Suspect]
     Route: 048
     Dates: start: 20110623, end: 20110707
  18. VALPROATE SODIUM [Concomitant]
     Indication: COMPULSIONS
     Route: 048
     Dates: start: 20110617, end: 20110711
  19. VALPROATE SODIUM [Concomitant]
     Route: 048
     Dates: start: 20110712, end: 20110712
  20. RISPERDAL [Suspect]
     Route: 048
     Dates: start: 20110621, end: 20110622
  21. VALPROATE SODIUM [Concomitant]
     Route: 048
     Dates: start: 20110729, end: 20110807
  22. VALPROATE SODIUM [Concomitant]
     Route: 048
     Dates: start: 20110729, end: 20110807
  23. VALPROATE SODIUM [Concomitant]
     Route: 048
     Dates: start: 20110713, end: 20110727
  24. VALPROATE SODIUM [Concomitant]
     Route: 048
     Dates: start: 20110729, end: 20110807

REACTIONS (3)
  - HOSPITALISATION [None]
  - DRUG LEVEL DECREASED [None]
  - DRUG INEFFECTIVE [None]
